FAERS Safety Report 22146342 (Version 1)
Quarter: 2023Q1

REPORT INFORMATION
  Report Type: Other
  Country: CA (occurrence: CA)
  Receive Date: 20230328
  Receipt Date: 20230328
  Transmission Date: 20230418
  Serious: Yes (Other)
  Sender: FDA-Public Use
  Company Number: CA-APOTEX-2023AP005887

PATIENT
  Sex: Male

DRUGS (25)
  1. ACETAMINOPHEN [Suspect]
     Active Substance: ACETAMINOPHEN
     Indication: Toothache
     Dosage: UNK
     Route: 064
  2. ACETAMINOPHEN [Suspect]
     Active Substance: ACETAMINOPHEN
     Indication: Renal pain
  3. ACETAMINOPHEN [Suspect]
     Active Substance: ACETAMINOPHEN
     Indication: Pain
  4. ACETAMINOPHEN [Suspect]
     Active Substance: ACETAMINOPHEN
     Indication: Headache
  5. ACETAMINOPHEN [Suspect]
     Active Substance: ACETAMINOPHEN
     Indication: Back pain
  6. ACETAMINOPHEN\METHOCARBAMOL [Suspect]
     Active Substance: ACETAMINOPHEN\METHOCARBAMOL
     Indication: Toothache
     Dosage: UNK
     Route: 064
  7. ACETAMINOPHEN\METHOCARBAMOL [Suspect]
     Active Substance: ACETAMINOPHEN\METHOCARBAMOL
     Indication: Renal pain
  8. ACETAMINOPHEN\METHOCARBAMOL [Suspect]
     Active Substance: ACETAMINOPHEN\METHOCARBAMOL
     Indication: Pain
  9. ACETAMINOPHEN\METHOCARBAMOL [Suspect]
     Active Substance: ACETAMINOPHEN\METHOCARBAMOL
     Indication: Headache
  10. ACETAMINOPHEN\METHOCARBAMOL [Suspect]
     Active Substance: ACETAMINOPHEN\METHOCARBAMOL
     Indication: Back pain
  11. TYLENOL [Suspect]
     Active Substance: ACETAMINOPHEN
     Indication: Toothache
     Dosage: UNK
     Route: 064
  12. TYLENOL [Suspect]
     Active Substance: ACETAMINOPHEN
     Indication: Renal pain
  13. TYLENOL [Suspect]
     Active Substance: ACETAMINOPHEN
     Indication: Pain
  14. TYLENOL [Suspect]
     Active Substance: ACETAMINOPHEN
     Indication: Headache
  15. TYLENOL [Suspect]
     Active Substance: ACETAMINOPHEN
     Indication: Back pain
  16. TYLENOL [Suspect]
     Active Substance: ACETAMINOPHEN
     Indication: Toothache
     Dosage: UNK
     Route: 064
  17. TYLENOL [Suspect]
     Active Substance: ACETAMINOPHEN
     Indication: Renal pain
  18. TYLENOL [Suspect]
     Active Substance: ACETAMINOPHEN
     Indication: Pain
  19. TYLENOL [Suspect]
     Active Substance: ACETAMINOPHEN
     Indication: Headache
  20. TYLENOL [Suspect]
     Active Substance: ACETAMINOPHEN
     Indication: Back pain
  21. TYLENOL [Suspect]
     Active Substance: ACETAMINOPHEN
     Indication: Toothache
     Dosage: UNK
     Route: 064
  22. TYLENOL [Suspect]
     Active Substance: ACETAMINOPHEN
     Indication: Renal pain
  23. TYLENOL [Suspect]
     Active Substance: ACETAMINOPHEN
     Indication: Pain
  24. TYLENOL [Suspect]
     Active Substance: ACETAMINOPHEN
     Indication: Headache
  25. TYLENOL [Suspect]
     Active Substance: ACETAMINOPHEN
     Indication: Back pain

REACTIONS (2)
  - Autism spectrum disorder [Unknown]
  - Foetal exposure during pregnancy [Unknown]
